FAERS Safety Report 8053142-6 (Version None)
Quarter: 2012Q1

REPORT INFORMATION
  Report Type: 
  Country: None (occurrence: None)
  Receive Date: 20120118
  Receipt Date: 20120116
  Transmission Date: 20120608
  Serious: Yes (Death, Hospitalization)
  Sender: FDA-Public Use
  Company Number: US-ABBOTT-12P-163-0893835-00

PATIENT
  Sex: Male
  Weight: 78.088 kg

DRUGS (1)
  1. LUPRON DEPOT [Suspect]
     Indication: PROSTATE CANCER
     Dates: start: 20101101, end: 20111123

REACTIONS (3)
  - PROSTATE CANCER [None]
  - NECK PAIN [None]
  - MUSCULOSKELETAL CHEST PAIN [None]
